FAERS Safety Report 21172790 (Version 1)
Quarter: 2022Q3

REPORT INFORMATION
  Report Type: Spontaneous
  Country: US (occurrence: US)
  Receive Date: 20220804
  Receipt Date: 20220804
  Transmission Date: 20221027
  Serious: Yes (Hospitalization, Other)
  Sender: FDA-Public Use
  Company Number: US-PFIZER INC-202201030453

PATIENT
  Age: 83 Year
  Sex: Female
  Weight: 58.957 kg

DRUGS (1)
  1. DOBUTAMINE HYDROCHLORIDE [Suspect]
     Active Substance: DOBUTAMINE HYDROCHLORIDE
     Indication: Cardiac failure chronic
     Dosage: UNK
     Dates: start: 202203

REACTIONS (1)
  - Drug ineffective [Unknown]
